FAERS Safety Report 8377494-2 (Version None)
Quarter: 2012Q2

REPORT INFORMATION
  Report Type: 
  Country: None (occurrence: None)
  Receive Date: 20120522
  Receipt Date: 20120203
  Transmission Date: 20120825
  Serious: No
  Sender: FDA-Public Use
  Company Number: US-ASTRAZENECA-2012SE07869

PATIENT
  Age: 59 Year
  Sex: Male

DRUGS (1)
  1. PRILOSEC [Suspect]
     Route: 048

REACTIONS (5)
  - MILD MENTAL RETARDATION [None]
  - PHOBIA [None]
  - DISABILITY [None]
  - DRUG EFFECT DECREASED [None]
  - MEMORY IMPAIRMENT [None]
